FAERS Safety Report 7956286-X (Version None)
Quarter: 2011Q4

REPORT INFORMATION
  Report Type: 
  Country: None (occurrence: None)
  Receive Date: 20111205
  Receipt Date: 20111122
  Transmission Date: 20120403
  Serious: Yes (Hospitalization, Other)
  Sender: FDA-Public Use
  Company Number: US-ELI_LILLY_AND_COMPANY-US201108006422

PATIENT
  Sex: Female

DRUGS (23)
  1. FUROSEMIDE [Concomitant]
  2. LABETALOL HCL [Concomitant]
     Dosage: UNK, TID
  3. PROTOZOL                           /00012501/ [Concomitant]
  4. CALCIUM D3 [Concomitant]
  5. CALCIUM PLUS D3 [Concomitant]
     Dosage: UNK, BID
  6. OXYCODONE HCL AND ACETAMINOPHEN [Concomitant]
  7. BACTRIM [Concomitant]
     Dosage: UNK, QD
  8. FORTEO [Suspect]
     Indication: OSTEOPOROSIS
     Dosage: 20 UG, QD
     Route: 065
     Dates: start: 20110730
  9. PREDNISONE TAB [Concomitant]
     Indication: ARTERITIS
     Dosage: 7.5 MG, QD
  10. LEVATOL [Concomitant]
  11. SIMVASTATIN [Concomitant]
  12. FORTEO [Suspect]
     Dosage: 20 UG, QD
     Route: 065
     Dates: start: 20111101
  13. HYDROCHLOROTHIAZID [Concomitant]
  14. SULFAMETHOXAZOLE AND TRIMETHOPRIM DOUBLE STRENGTH [Concomitant]
  15. HYDROXYZINE [Concomitant]
  16. OXYCONTIN [Concomitant]
     Dosage: UNK, AS NEEDED
  17. ERGOCALCIFEROL [Concomitant]
     Dosage: UNK, QD
  18. AMLODIPINE [Concomitant]
     Dosage: UNK, QD
  19. ZOCOR [Concomitant]
     Dosage: UNK, QD
  20. VITAMIN B-12 [Concomitant]
     Dosage: UNK, QD
  21. HYDRALAZINE HCL [Concomitant]
     Dosage: UNK, TID
  22. FORTEO [Suspect]
     Dosage: 20 UG, QD
     Route: 065
     Dates: end: 20111101
  23. NEURONTIN [Concomitant]
     Dosage: UNK, QD

REACTIONS (8)
  - SPINAL COMPRESSION FRACTURE [None]
  - LETHARGY [None]
  - INCORRECT DOSE ADMINISTERED BY DEVICE [None]
  - MOBILITY DECREASED [None]
  - OVERDOSE [None]
  - DRUG DOSE OMISSION [None]
  - DYSURIA [None]
  - CEREBROVASCULAR ACCIDENT [None]
